FAERS Safety Report 16779352 (Version 2)
Quarter: 2019Q4

REPORT INFORMATION
  Report Type: Spontaneous
  Country: US (occurrence: US)
  Receive Date: 20190906
  Receipt Date: 20191030
  Transmission Date: 20200122
  Serious: No
  Sender: FDA-Public Use
  Company Number: US-PFIZER INC-2019384680

PATIENT
  Age: 44 Year
  Sex: Female
  Weight: 95.24 kg

DRUGS (2)
  1. ENBREL [Interacting]
     Active Substance: ETANERCEPT
     Dosage: UNK
  2. XELJANZ XR [Suspect]
     Active Substance: TOFACITINIB CITRATE
     Indication: RHEUMATOID ARTHRITIS
     Dosage: 11 MG, DAILY
     Route: 048
     Dates: start: 20190226

REACTIONS (1)
  - Potentiating drug interaction [Unknown]
